FAERS Safety Report 10078872 (Version 2)
Quarter: 2014Q2

REPORT INFORMATION
  Report Type: Spontaneous
  Country: BR (occurrence: BR)
  Receive Date: 20140415
  Receipt Date: 20140519
  Transmission Date: 20141212
  Serious: Yes (Hospitalization, Other)
  Sender: FDA-Public Use
  Company Number: BR-AMGEN-BRASP2014027220

PATIENT
  Age: 63 Year
  Sex: Female
  Weight: 104 kg

DRUGS (5)
  1. ENBREL [Suspect]
     Indication: RHEUMATOID ARTHRITIS
     Dosage: 50 MG, WEEKLY
     Route: 058
     Dates: start: 20111220, end: 20140306
  2. METHOTREXATE [Concomitant]
     Dosage: 4 TABLETS OF 2.5MG (10MG), WEEKLY
  3. FOLIN                              /00024201/ [Concomitant]
     Dosage: 2 TABLETS WEEKLY
  4. VIMOVO [Concomitant]
     Dosage: 2 TABLETS DAILY
  5. CALTRATE + D                       /00944201/ [Concomitant]
     Dosage: 1 TABLET DAILYT

REACTIONS (7)
  - Respiratory failure [Unknown]
  - Pulmonary mass [Unknown]
  - Lung infiltration [Unknown]
  - Hypothermia [Unknown]
  - Fatigue [Unknown]
  - Bronchitis [Unknown]
  - Interstitial lung disease [Recovered/Resolved]
